FAERS Safety Report 10421081 (Version 2)
Quarter: 2014Q4

REPORT INFORMATION
  Report Type: Spontaneous
  Country: US (occurrence: None)
  Receive Date: 20140722
  Receipt Date: 20141121
  Transmission Date: 20150528
  Serious: No
  Sender: FDA-Public Use
  Company Number: 163-10004-14053549

PATIENT
  Age: 61 Year
  Sex: Male

DRUGS (4)
  1. HUMIRA (ADALIMUMAB) [Concomitant]
  2. OTEZLA [Suspect]
     Active Substance: APREMILAST
     Indication: PSORIATIC ARTHROPATHY
     Dosage: 2 IN 1 D
     Route: 048
     Dates: start: 20140509, end: 20140525
  3. ZOCOR [Concomitant]
     Active Substance: SIMVASTATIN
  4. SYNTHROID [Concomitant]
     Active Substance: LEVOTHYROXINE SODIUM

REACTIONS (5)
  - Depression [None]
  - Migraine [None]
  - Psoriasis [None]
  - Feeling jittery [None]
  - Nervousness [None]

NARRATIVE: CASE EVENT DATE: 20140509
